FAERS Safety Report 10173263 (Version 2)
Quarter: 2014Q3

REPORT INFORMATION
  Report Type: Spontaneous
  Country: IT (occurrence: None)
  Receive Date: 20140513
  Receipt Date: 20140721
  Transmission Date: 20150326
  Serious: Yes (Hospitalization)
  Sender: FDA-Public Use
  Company Number: NL01PV14.35914

PATIENT
  Age: 40 Year
  Sex: Male

DRUGS (6)
  1. DAPAROX [Suspect]
     Active Substance: PAROXETINE HYDROCHLORIDE
     Indication: INTENTIONAL SELF-INJURY
     Dosage: 2 DF (20 MG TABLETS), TOTAL, ORAL
     Route: 048
     Dates: start: 20140426, end: 20140426
  2. ZOLPIDEM [Suspect]
     Active Substance: ZOLPIDEM\ZOLPIDEM TARTRATE
     Indication: INTENTIONAL SELF-INJURY
     Dosage: 40 DF, TOTAL, ORAL
     Route: 048
     Dates: start: 20140426, end: 20140426
  3. ETHANOL (ETHANOL) [Suspect]
     Active Substance: ALCOHOL
  4. GABAPENTIN. [Concomitant]
     Active Substance: GABAPENTIN
  5. EN [Suspect]
     Active Substance: DELORAZEPAM
     Indication: INTENTIONAL SELF-INJURY
     Dosage: 80 DROPS ( 1 MG/ML DROPS), TOTAL, ORAL
     Route: 048
     Dates: start: 20140426, end: 20140426
  6. INDOXEN [Suspect]
     Active Substance: INDOMETHACIN
     Indication: INTENTIONAL SELF-INJURY
     Dosage: 5 DF (50 MG HARD CAPSULES), SINGLE (TOTAL), ORAL
     Route: 048
     Dates: start: 20140426, end: 20140426

REACTIONS (2)
  - Bradykinesia [None]
  - Drug abuse [None]

NARRATIVE: CASE EVENT DATE: 20140427
